FAERS Safety Report 18775982 (Version 1)
Quarter: 2021Q1

REPORT INFORMATION
  Report Type: Spontaneous
  Country: US (occurrence: US)
  Receive Date: 20210122
  Receipt Date: 20210122
  Transmission Date: 20210419
  Serious: No
  Sender: FDA-Public Use
  Company Number: US-GLAXOSMITHKLINE-USCH2021000369

PATIENT
  Age: 23 Year
  Sex: Female

DRUGS (1)
  1. ADVIL [Suspect]
     Active Substance: IBUPROFEN
     Indication: PRODUCT USED FOR UNKNOWN INDICATION
     Dosage: UNK

REACTIONS (9)
  - Headache [Unknown]
  - Back pain [Unknown]
  - Lymph node pain [Unknown]
  - Pyrexia [Recovering/Resolving]
  - Pain [Unknown]
  - Chills [Unknown]
  - Arthralgia [Unknown]
  - Pain in extremity [Unknown]
  - Sensitive skin [Unknown]

NARRATIVE: CASE EVENT DATE: 20210112
